FAERS Safety Report 6176794-4 (Version None)
Quarter: 2009Q2

REPORT INFORMATION
  Report Type: 
  Country: None (occurrence: None)
  Receive Date: 20090501
  Receipt Date: 20090416
  Transmission Date: 20091009
  Serious: Yes (Hospitalization, Other)
  Sender: FDA-Public Use
  Company Number: CA-B.I. PHARMACEUTICALS,INC./RIDGEFIELD-2009-DE-03139GD

PATIENT
  Age: 57 Year
  Sex: Male

DRUGS (5)
  1. IBUPROFEN [Suspect]
     Indication: MYALGIA
  2. RANITIDINE [Suspect]
     Indication: GASTROOESOPHAGEAL REFLUX DISEASE
  3. PANTOPRAZOLE SODIUM [Suspect]
     Indication: GASTROOESOPHAGEAL REFLUX DISEASE
     Dosage: 40MG
  4. ACETYLSALICYLIC ACID [Suspect]
     Indication: CORONARY ARTERY DISEASE
     Dosage: 81MG
  5. ATORVASTATIN [Concomitant]
     Indication: CORONARY ARTERY DISEASE
     Dosage: 40MG

REACTIONS (16)
  - DIARRHOEA [None]
  - DRUG INEFFECTIVE [None]
  - HYPERKALAEMIA [None]
  - LEUKOCYTURIA [None]
  - MALAISE [None]
  - MYALGIA [None]
  - NAUSEA [None]
  - NEPHRITIS ALLERGIC [None]
  - OESOPHAGEAL ULCER [None]
  - OESOPHAGITIS [None]
  - POLYDIPSIA [None]
  - POLYURIA [None]
  - PROTEINURIA [None]
  - PYREXIA [None]
  - RENAL FAILURE ACUTE [None]
  - VOMITING [None]
